FAERS Safety Report 24719814 (Version 2)
Quarter: 2025Q3

REPORT INFORMATION
  Report Type: Spontaneous
  Country: EU (occurrence: EU)
  Receive Date: 20241211
  Receipt Date: 20250803
  Transmission Date: 20251020
  Serious: Yes (Other)
  Sender: ALEXION PHARMACEUTICALS
  Company Number: None

PATIENT
  Age: 42 Year
  Sex: Female
  Weight: 90 kg

DRUGS (15)
  1. FASLODEX [Suspect]
     Active Substance: FULVESTRANT
     Indication: Breast cancer
  2. FASLODEX [Suspect]
     Active Substance: FULVESTRANT
  3. Daflon [Concomitant]
  4. Decapeptyl [Concomitant]
     Indication: Breast cancer
     Dosage: 3,75 MG/2 ML
     Dates: start: 201701, end: 202406
  5. Decapeptyl [Concomitant]
     Indication: Breast cancer
     Dosage: 11,25 MG/2 ML
     Dates: start: 202407, end: 202409
  6. TAMOXIFEN [Concomitant]
     Active Substance: TAMOXIFEN
  7. Axelta [Concomitant]
     Indication: Breast cancer
  8. LASIX [Concomitant]
     Active Substance: FUROSEMIDE
     Indication: Blood pressure increased
  9. TACHIPIRINA [Concomitant]
     Active Substance: ACETAMINOPHEN
     Indication: Pyrexia
  10. Tad [Concomitant]
  11. ABEMACICLIB [Concomitant]
     Active Substance: ABEMACICLIB
     Dosage: 150 MG
     Dates: start: 202308, end: 202310
  12. ABEMACICLIB [Concomitant]
     Active Substance: ABEMACICLIB
  13. ELIQUIS [Concomitant]
     Active Substance: APIXABAN
     Dosage: 2.5 MILLIGRAM, BID
     Dates: start: 202309, end: 202409
  14. ELIQUIS [Concomitant]
     Active Substance: APIXABAN
     Dosage: 5 MILLIGRAM, BID
  15. ELIQUIS [Concomitant]
     Active Substance: APIXABAN

REACTIONS (8)
  - Oropharyngeal discomfort [Recovered/Resolved]
  - Nausea [Recovered/Resolved]
  - Syncope [Recovered/Resolved]
  - Loss of consciousness [Recovered/Resolved]
  - Feeling cold [Recovered/Resolved]
  - Flushing [Recovered/Resolved]
  - Blood pressure increased [Recovered/Resolved]
  - Pyrexia [Recovered/Resolved]

NARRATIVE: CASE EVENT DATE: 20241018
